FAERS Safety Report 10621518 (Version 1)
Quarter: 2014Q4

REPORT INFORMATION
  Report Type: Spontaneous
  Country: FR (occurrence: FR)
  Receive Date: 20141203
  Receipt Date: 20141203
  Transmission Date: 20150529
  Serious: Yes (Hospitalization)
  Sender: FDA-Public Use
  Company Number: FR-ROCHE-1498700

PATIENT
  Age: 83 Year
  Sex: Female

DRUGS (4)
  1. TAMIFLU [Suspect]
     Active Substance: OSELTAMIVIR PHOSPHATE
     Indication: ANTIVIRAL PROPHYLAXIS
     Route: 048
     Dates: start: 20140331, end: 20140409
  2. CLOPIXOL [Suspect]
     Active Substance: ZUCLOPENTHIXOL ACETATE
     Indication: AGITATION
     Route: 048
     Dates: start: 20140404, end: 20140409
  3. CLOPIXOL [Suspect]
     Active Substance: ZUCLOPENTHIXOL ACETATE
     Dosage: 5 MG IN MORNING AND 3 MG IN EVENING
     Route: 048
     Dates: end: 20140425
  4. MIANSERIN HYDROCHLORIDE [Suspect]
     Active Substance: MIANSERIN HYDROCHLORIDE
     Indication: AGGRESSION
     Dosage: DOSE INCREASED FROM 20 MG DAILY TO 60 MG DAILY
     Route: 048
     Dates: start: 20131028, end: 20140525

REACTIONS (1)
  - Deep vein thrombosis [Recovered/Resolved]

NARRATIVE: CASE EVENT DATE: 20140425
